FAERS Safety Report 8448310-5 (Version None)
Quarter: 2012Q2

REPORT INFORMATION
  Report Type: 
  Country: None (occurrence: None)
  Receive Date: 20120619
  Receipt Date: 20120607
  Transmission Date: 20120825
  Serious: No
  Sender: FDA-Public Use
  Company Number: US-ASTRAZENECA-2012SE38169

PATIENT
  Age: 55 Year
  Sex: Female

DRUGS (2)
  1. SINGULAIR [Concomitant]
     Indication: ASTHMA
  2. SYMBICORT [Suspect]
     Indication: ASTHMA
     Dosage: 160 UNKNOWN
     Route: 055

REACTIONS (2)
  - GASTROOESOPHAGEAL REFLUX DISEASE [None]
  - GASTROINTESTINAL PAIN [None]
